FAERS Safety Report 5029391-8 (Version None)
Quarter: 2006Q2

REPORT INFORMATION
  Report Type: 
  Country: None (occurrence: None)
  Receive Date: 20060614
  Receipt Date: 20060530
  Transmission Date: 20061013
  Serious: Yes (Life-Threatening)
  Sender: FDA-Public Use
  Company Number: 2006US000895

PATIENT
  Age: 66 Year
  Sex: Male
  Weight: 101.6 kg

DRUGS (3)
  1. ADENOSCAN [Suspect]
     Indication: SCAN MYOCARDIAL PERFUSION
     Dosage: 58.9 MG, TOTAL DOSE, PARENTERAL
     Route: 051
  2. THALLIUM (THALLIUM) [Concomitant]
  3. URECHOLINE [Concomitant]

REACTIONS (1)
  - ARTERIOSPASM CORONARY [None]
